FAERS Safety Report 16041622 (Version 2)
Quarter: 2019Q3

REPORT INFORMATION
  Report Type: Spontaneous
  Country: US (occurrence: US)
  Receive Date: 20190306
  Receipt Date: 20190717
  Transmission Date: 20191004
  Serious: No
  Sender: FDA-Public Use
  Company Number: US-PFIZER INC-2019083494

PATIENT
  Age: 59 Year
  Sex: Female

DRUGS (12)
  1. TREXIMET [Suspect]
     Active Substance: NAPROXEN SODIUM\SUMATRIPTAN SUCCINATE
     Dosage: UNK
  2. PRECOSE [Suspect]
     Active Substance: ACARBOSE
     Dosage: UNK
  3. SKELAXIN [Suspect]
     Active Substance: METAXALONE
     Dosage: UNK
  4. CIPROFLOXACIN. [Suspect]
     Active Substance: CIPROFLOXACIN
     Dosage: UNK
  5. TALWIN [Suspect]
     Active Substance: PENTAZOCINE LACTATE
     Dosage: UNK
  6. CARVEDILOL. [Suspect]
     Active Substance: CARVEDILOL
     Dosage: UNK
  7. SOMA [Suspect]
     Active Substance: CARISOPRODOL
     Dosage: UNK
  8. TALWIN COMPOUND [Suspect]
     Active Substance: ASPIRIN\PENTAZOCINE HYDROCHLORIDE
     Dosage: UNK
  9. HYDROXYZINE PAMOATE. [Suspect]
     Active Substance: HYDROXYZINE PAMOATE
     Dosage: UNK
  10. ATIVAN [Suspect]
     Active Substance: LORAZEPAM
     Dosage: UNK
  11. IMITREX [Suspect]
     Active Substance: SUMATRIPTAN SUCCINATE
     Dosage: UNK
  12. METHADONE [Suspect]
     Active Substance: METHADONE HYDROCHLORIDE
     Dosage: UNK

REACTIONS (1)
  - Drug hypersensitivity [Unknown]
